FAERS Safety Report 5278822-7 (Version None)
Quarter: 2007Q1

REPORT INFORMATION
  Report Type: 
  Country: None (occurrence: None)
  Receive Date: 20061208
  Receipt Date: 20060531
  Transmission Date: 20070707
  Serious: Yes (Other)
  Sender: FDA-Public Use
  Company Number: USA-2005-0021462

PATIENT
  Sex: Male

DRUGS (22)
  1. OXYCONTIN [Suspect]
     Dosage: 40 MG, BID
  2. OXYIR [Concomitant]
  3. DOCUSATE [Concomitant]
  4. HYDROCHLOROTHIAZIDE [Concomitant]
  5. PRINIVIL [Concomitant]
  6. PREVACID [Concomitant]
  7. FIBERCON [Concomitant]
  8. PROZAC [Concomitant]
  9. FLEXERIL [Concomitant]
  10. ACETAMINOPHEN AND OXYCODONE HCL [Concomitant]
  11. ALBUTEROL [Concomitant]
  12. TRILEPTAL [Concomitant]
  13. BACLOFEN [Concomitant]
  14. VICODIN [Concomitant]
  15. VALIUM [Concomitant]
  16. SEPTRA DS [Concomitant]
  17. METHADONE HCL [Concomitant]
  18. AMITRIPTYLINE HCL [Concomitant]
  19. TYLENOL [Concomitant]
  20. NAPROXEN [Concomitant]
  21. MSIR CCAPSULES 15 MG [Concomitant]
  22. OXCARBAZEPINE [Concomitant]

REACTIONS (50)
  - ABDOMINAL DISTENSION [None]
  - ANXIETY [None]
  - ARTHRALGIA [None]
  - BACK PAIN [None]
  - BLUNTED AFFECT [None]
  - BRONCHITIS [None]
  - COUGH [None]
  - DELUSIONAL DISORDER, UNSPECIFIED TYPE [None]
  - DENTAL EXAMINATION ABNORMAL [None]
  - DEPRESSION [None]
  - DRUG DEPENDENCE [None]
  - DRUG HYPERSENSITIVITY [None]
  - DRUG WITHDRAWAL SYNDROME [None]
  - ERYTHEMA [None]
  - FACIAL PAIN [None]
  - HEART RATE INCREASED [None]
  - HYPOACUSIS [None]
  - HYPOAESTHESIA [None]
  - INADEQUATE ANALGESIA [None]
  - INCREASED UPPER AIRWAY SECRETION [None]
  - INTENTIONAL DRUG MISUSE [None]
  - JOINT RANGE OF MOTION DECREASED [None]
  - LEUKOCYTOSIS [None]
  - LUNG INFILTRATION [None]
  - MALAISE [None]
  - MUSCULOSKELETAL PAIN [None]
  - MUSCULOSKELETAL STIFFNESS [None]
  - MYALGIA [None]
  - NAUSEA [None]
  - NECK INJURY [None]
  - OBSESSIVE-COMPULSIVE DISORDER [None]
  - ORAL INFECTION [None]
  - OSTEOARTHRITIS [None]
  - PAIN [None]
  - PAIN IN EXTREMITY [None]
  - PARAESTHESIA [None]
  - PARANOIA [None]
  - PNEUMONIA [None]
  - PYREXIA [None]
  - RALES [None]
  - RHONCHI [None]
  - ROAD TRAFFIC ACCIDENT [None]
  - STRESS [None]
  - SWELLING FACE [None]
  - TACHYCARDIA [None]
  - TEMPERATURE INTOLERANCE [None]
  - UMBILICAL HERNIA [None]
  - UPPER RESPIRATORY TRACT CONGESTION [None]
  - VOMITING [None]
  - WEIGHT INCREASED [None]
